FAERS Safety Report 8476311-X (Version None)
Quarter: 2012Q2

REPORT INFORMATION
  Report Type: 
  Country: None (occurrence: None)
  Receive Date: 20120628
  Receipt Date: 20120618
  Transmission Date: 20120825
  Serious: Yes (Hospitalization)
  Sender: FDA-Public Use
  Company Number: FR-ABBOTT-12P-056-0947130-01

PATIENT
  Age: 41 Year
  Sex: Female

DRUGS (3)
  1. HUMIRA [Suspect]
     Indication: CROHN'S DISEASE
     Route: 058
     Dates: start: 20081112
  2. HUMIRA [Suspect]
     Route: 058
     Dates: start: 20090325, end: 20110812
  3. REMICADE [Concomitant]
     Indication: CROHN'S DISEASE

REACTIONS (3)
  - SUBILEUS [None]
  - CROHN'S DISEASE [None]
  - INTESTINAL STENOSIS [None]
